FAERS Safety Report 16178809 (Version 1)
Quarter: 2019Q2

REPORT INFORMATION
  Report Type: Spontaneous
  Country: US (occurrence: US)
  Receive Date: 20190410
  Receipt Date: 20190410
  Transmission Date: 20190711
  Serious: Yes (Hospitalization)
  Sender: FDA-Public Use
  Company Number: US-UNITED THERAPEUTICS-UNT-2019-006050

PATIENT
  Age: 69 Year
  Sex: Male

DRUGS (2)
  1. FERROUS SULFATE. [Concomitant]
     Active Substance: FERROUS SULFATE
     Indication: PRODUCT USED FOR UNKNOWN INDICATION
     Dosage: UNK
     Route: 048
  2. ORENITRAM [Suspect]
     Active Substance: TREPROSTINIL
     Indication: PRODUCT USED FOR UNKNOWN INDICATION
     Dosage: 0.125 MG, BID
     Route: 048
     Dates: start: 20190330, end: 20190401

REACTIONS (5)
  - Nausea [Unknown]
  - Abdominal pain upper [Unknown]
  - Cardiac failure [Unknown]
  - Renal failure [Unknown]
  - Vomiting [Unknown]

NARRATIVE: CASE EVENT DATE: 20190401
